FAERS Safety Report 14636672 (Version 14)
Quarter: 2018Q4

REPORT INFORMATION
  Report Type: Spontaneous
  Country: CA (occurrence: CA)
  Receive Date: 20180314
  Receipt Date: 20181126
  Transmission Date: 20190204
  Serious: Yes (Hospitalization, Other)
  Sender: FDA-Public Use
  Company Number: CA-CELLTRION INC.-2018CA018543

PATIENT

DRUGS (21)
  1. IRON [Concomitant]
     Active Substance: IRON
     Dosage: UNK
  2. CALCIUM [Concomitant]
     Active Substance: CALCIUM
     Dosage: UNK
  3. SOLU-CORTEF [Concomitant]
     Active Substance: HYDROCORTISONE SODIUM SUCCINATE
     Dosage: UNK
     Dates: start: 20180215
  4. INFLECTRA [Suspect]
     Active Substance: INFLIXIMAB-DYYB
     Dosage: 470MG (10MG/KG), CYCLIC (EVERY 4 WEEKS)
     Route: 042
     Dates: start: 20180712
  5. INFLECTRA [Suspect]
     Active Substance: INFLIXIMAB-DYYB
     Dosage: 10MG/KG, CYCLIC (EVERY 0,2,6 WEEKS AND EVERY 8 WEEKS);
     Route: 042
     Dates: start: 20180809
  6. PENTASA [Concomitant]
     Active Substance: MESALAMINE
     Dosage: UNK
  7. INFLECTRA [Suspect]
     Active Substance: INFLIXIMAB-DYYB
     Dosage: 500 MG, CYCLIC, WEEK 0,2,6
     Route: 042
     Dates: start: 20180412
  8. INFLECTRA [Suspect]
     Active Substance: INFLIXIMAB-DYYB
     Dosage: 480 MG, EVERY 4 WEEKS
     Route: 042
     Dates: start: 20181004
  9. SOLU-MEDROL [Concomitant]
     Active Substance: METHYLPREDNISOLONE SODIUM SUCCINATE
     Dosage: UNK
     Dates: start: 201802
  10. ALESSE 28 [Concomitant]
     Active Substance: ETHINYL ESTRADIOL\LEVONORGESTREL
     Dosage: UNK
  11. INFLECTRA [Suspect]
     Active Substance: INFLIXIMAB-DYYB
     Indication: COLITIS ULCERATIVE
     Dosage: 200 MG, CYCLIC (WEEKS 0,2,6)
     Route: 042
     Dates: start: 20180301, end: 20180301
  12. INFLECTRA [Suspect]
     Active Substance: INFLIXIMAB-DYYB
     Dosage: 500 MG, CYCLIC, WEEK 0,2,6
     Route: 042
     Dates: start: 20180607
  13. INFLECTRA [Suspect]
     Active Substance: INFLIXIMAB-DYYB
     Dosage: 480 MG, EVERY 4 WEEKS
     Route: 042
     Dates: start: 20181112
  14. PREDNISONE. [Concomitant]
     Active Substance: PREDNISONE
     Dosage: UNK
     Dates: start: 2014
  15. INFLECTRA [Suspect]
     Active Substance: INFLIXIMAB-DYYB
     Dosage: 500 MG, CYCLIC, WEEK 0,2,6
     Route: 042
     Dates: start: 20180314
  16. VITAMIN D [Concomitant]
     Active Substance: CHOLECALCIFEROL
     Dosage: UNK
  17. IMURAN [Concomitant]
     Active Substance: AZATHIOPRINE
     Dosage: UNK
     Dates: start: 20180307
  18. ACETAMINOPHEN. [Concomitant]
     Active Substance: ACETAMINOPHEN
     Dosage: UNK
     Dates: start: 20180809
  19. INFLECTRA [Suspect]
     Active Substance: INFLIXIMAB-DYYB
     Dosage: 400 MG, CYCLIC (EVERY 4 WEEKS); INTRAVENOUS
     Route: 042
  20. INFLECTRA [Suspect]
     Active Substance: INFLIXIMAB-DYYB
     Dosage: 500 MG, CYCLIC, WEEK 0,2,6
     Route: 042
     Dates: start: 20180412
  21. INFLECTRA [Suspect]
     Active Substance: INFLIXIMAB-DYYB
     Dosage: 500 MG, WEEKS 0, 2, 6 WEEKS AND EVERY 8 WEEKS
     Route: 042
     Dates: start: 20180906

REACTIONS (17)
  - Weight increased [Not Recovered/Not Resolved]
  - Vomiting [Recovered/Resolved]
  - Diarrhoea [Recovered/Resolved]
  - Fatigue [Unknown]
  - Drug level increased [Unknown]
  - Incorrect dose administered [Unknown]
  - Product use issue [Unknown]
  - Headache [Unknown]
  - Off label use [Unknown]
  - Drug effect incomplete [Unknown]
  - Product use issue [Unknown]
  - Drug ineffective [Unknown]
  - Abdominal pain [Recovered/Resolved]
  - Condition aggravated [Unknown]
  - Haematochezia [Not Recovered/Not Resolved]
  - Clostridium difficile infection [Unknown]
  - Anaemia [Unknown]

NARRATIVE: CASE EVENT DATE: 201806
